FAERS Safety Report 5194063-6 (Version None)
Quarter: 2006Q4

REPORT INFORMATION
  Report Type: 
  Country: None (occurrence: None)
  Receive Date: 20061226
  Receipt Date: 20061219
  Transmission Date: 20070319
  Serious: Yes (Other)
  Sender: FDA-Public Use
  Company Number: PHO-2006-054

PATIENT
  Sex: 0

DRUGS (2)
  1. PHOTOFRIN [Suspect]
     Indication: BRONCHIAL CARCINOMA
     Dosage: 2 MG/KG IV
     Route: 042
  2. CHEMOTHERAPY WITH RADIATION [Concomitant]

REACTIONS (1)
  - BRONCHOPLEURAL FISTULA [None]
